FAERS Safety Report 11404058 (Version 1)
Quarter: 2015Q3

REPORT INFORMATION
  Report Type: Spontaneous
  Country: NZ (occurrence: NZ)
  Receive Date: 20150821
  Receipt Date: 20150821
  Transmission Date: 20151125
  Serious: Yes (Other)
  Sender: FDA-Public Use
  Company Number: NZ-MYLANLABS-2015M1027794

PATIENT

DRUGS (9)
  1. VITADOL-C [Concomitant]
     Indication: PRODUCT USED FOR UNKNOWN INDICATION
     Dosage: VITAMINS C AND D; 0.5 ML ONCE A DAY
     Route: 065
  2. CALCIUM CARBONATE. [Concomitant]
     Active Substance: CALCIUM CARBONATE
     Indication: PRODUCT USED FOR UNKNOWN INDICATION
     Dosage: 900 MG ONCE A DAY
     Route: 065
  3. FLUTICASONE [Interacting]
     Active Substance: FLUTICASONE\FLUTICASONE PROPIONATE
     Indication: PRODUCT USED FOR UNKNOWN INDICATION
     Dosage: 125 MICROG, TWICE A DAY
     Route: 055
  4. SODIUM CHLORIDE. [Concomitant]
     Active Substance: SODIUM CHLORIDE
     Indication: PRODUCT USED FOR UNKNOWN INDICATION
     Dosage: 7%; TWICE A DAY
     Route: 055
  5. PANCRELIPASE. [Concomitant]
     Active Substance: PANCRELIPASE
     Indication: PRODUCT USED FOR UNKNOWN INDICATION
     Dosage: 10000; 20 CAPSULES ONCE A DAY
     Route: 065
  6. COLECALCIFEROL [Concomitant]
     Active Substance: CHOLECALCIFEROL
     Indication: PRODUCT USED FOR UNKNOWN INDICATION
     Dosage: 100000 IU MONTHLY FOR 3 MONTHS
     Route: 065
  7. ITRACONAZOLE. [Interacting]
     Active Substance: ITRACONAZOLE
     Indication: ASPERGILLUS INFECTION
     Dosage: 100 MG TWICE A DAY
     Route: 048
  8. BUDESONIDE. [Suspect]
     Active Substance: BUDESONIDE
     Indication: NASAL POLYPS
     Dosage: 100 MICROG/ NOSTRIL, TWICE A DAY
     Route: 045
  9. MULTIVITAMIN                       /00097801/ [Concomitant]
     Active Substance: VITAMINS
     Indication: PRODUCT USED FOR UNKNOWN INDICATION
     Dosage: VITAMINS A, B, C, D, E AND K; 1 CAPSULE ONCE A DAY
     Route: 065

REACTIONS (3)
  - Growth retardation [Recovered/Resolved]
  - Drug interaction [Recovered/Resolved]
  - Adrenal suppression [Recovered/Resolved]
